FAERS Safety Report 7517637-3 (Version None)
Quarter: 2011Q2

REPORT INFORMATION
  Report Type: 
  Country: None (occurrence: None)
  Receive Date: 20110601
  Receipt Date: 20110518
  Transmission Date: 20111010
  Serious: Yes (Hospitalization)
  Sender: FDA-Public Use
  Company Number: JP-ELI_LILLY_AND_COMPANY-JP201103004702

PATIENT
  Sex: Female

DRUGS (1)
  1. FORTEO [Suspect]
     Indication: OSTEOPOROSIS
     Dosage: UNK
     Route: 058

REACTIONS (5)
  - DECREASED APPETITE [None]
  - THORACIC VERTEBRAL FRACTURE [None]
  - LUMBAR VERTEBRAL FRACTURE [None]
  - DECUBITUS ULCER [None]
  - WEIGHT DECREASED [None]
